FAERS Safety Report 16439430 (Version 1)
Quarter: 2019Q2

REPORT INFORMATION
  Report Type: Report from Study
  Country: IT (occurrence: IT)
  Receive Date: 20190617
  Receipt Date: 20190617
  Transmission Date: 20190711
  Serious: Yes (Hospitalization)
  Sender: FDA-Public Use
  Company Number: IT-PFIZER INC-2019248991

PATIENT
  Age: 71 Year
  Sex: Female
  Weight: 59 kg

DRUGS (2)
  1. ABRAXANE [Suspect]
     Active Substance: PACLITAXEL
     Indication: DUCTAL ADENOCARCINOMA OF PANCREAS
     Dosage: UNK
     Route: 041
     Dates: start: 20180726, end: 20190117
  2. GEMCITABINE HYDROCHLORIDE. [Suspect]
     Active Substance: GEMCITABINE HYDROCHLORIDE
     Indication: DUCTAL ADENOCARCINOMA OF PANCREAS
     Dosage: UNK
     Route: 041
     Dates: start: 20180726, end: 20190117

REACTIONS (1)
  - Cholecystitis acute [Recovered/Resolved]

NARRATIVE: CASE EVENT DATE: 20180806
